FAERS Safety Report 8998687 (Version 1)
Quarter: 2013Q1

REPORT INFORMATION
  Report Type: Spontaneous
  Country: FR (occurrence: FR)
  Receive Date: 20130103
  Receipt Date: 20130103
  Transmission Date: 20140127
  Serious: Yes (Hospitalization, Other)
  Sender: FDA-Public Use
  Company Number: FR-PFIZER INC-2012331766

PATIENT
  Age: 55 Year
  Sex: Male

DRUGS (6)
  1. EFFEXOR [Suspect]
     Dosage: UNK
     Dates: start: 2007, end: 201210
  2. IBUPROFEN [Suspect]
     Indication: TOOTHACHE
     Dosage: 1 DF (400MG), 3X/DAY
     Route: 048
     Dates: start: 20120906, end: 20120910
  3. ORACILLINE [Suspect]
     Indication: TOOTHACHE
     Dosage: UNK
     Route: 048
     Dates: start: 20120906
  4. BIRODOGYL [Suspect]
     Dosage: UNK
     Route: 048
     Dates: start: 20120910, end: 20120910
  5. MABTHERA [Suspect]
     Indication: LYMPHOMA
     Dosage: UNK
     Dates: start: 20120131, end: 201204
  6. PARACETAMOL [Suspect]
     Indication: TOOTHACHE
     Dosage: UNK
     Route: 048
     Dates: start: 20120906

REACTIONS (6)
  - Agranulocytosis [Not Recovered/Not Resolved]
  - Thrombocytopenia [Not Recovered/Not Resolved]
  - Bone marrow failure [Recovered/Resolved]
  - Infection [Unknown]
  - Gingival inflammation [Unknown]
  - Candida infection [Unknown]
